FAERS Safety Report 9634540 (Version 2)
Quarter: 2013Q4

REPORT INFORMATION
  Report Type: Spontaneous
  Country: FR (occurrence: FR)
  Receive Date: 20131021
  Receipt Date: 20131202
  Transmission Date: 20140711
  Serious: Yes (Other)
  Sender: FDA-Public Use
  Company Number: FR-PFIZER INC-2013296959

PATIENT
  Age: 17 Year
  Sex: Female

DRUGS (12)
  1. PRODILANTIN [Suspect]
     Dosage: UNK
     Route: 040
     Dates: start: 20130724, end: 20130724
  2. PRODILANTIN [Suspect]
     Dosage: UNK
     Route: 040
     Dates: start: 20130727, end: 20130728
  3. MABTHERA [Suspect]
     Indication: ENCEPHALITIS AUTOIMMUNE
     Dosage: 375 MG/M2, UNK
     Route: 042
     Dates: start: 20130717, end: 20130724
  4. PROPOFOL LIPURO [Suspect]
     Dosage: UNK
     Route: 042
     Dates: start: 20130726
  5. SUFENTANIL MYLAN [Suspect]
     Dosage: UNK
     Route: 042
     Dates: start: 20130726
  6. MIDAZOLAM MYLAN [Suspect]
     Dosage: UNK
     Route: 042
     Dates: start: 20130726
  7. THIOPENTAL ROTEXMEDICA [Suspect]
     Dosage: UNK
     Route: 042
     Dates: start: 20130728
  8. KEPPRA [Concomitant]
     Dosage: UNK
     Dates: start: 201210
  9. ZONEGRAN [Concomitant]
     Dosage: UNK
     Dates: start: 201210
  10. DI-HYDAN [Concomitant]
     Dosage: UNK
     Dates: start: 20130703
  11. DERMOVAL [Concomitant]
     Dosage: UNK
     Dates: start: 20130717
  12. CORTICOSTEROID NOS [Concomitant]
     Dosage: UNK
     Route: 048
     Dates: start: 20130717, end: 20130725

REACTIONS (2)
  - Rash generalised [Recovering/Resolving]
  - Eosinophilia [Recovered/Resolved]
